FAERS Safety Report 6861476-3 (Version None)
Quarter: 2010Q3

REPORT INFORMATION
  Report Type: 
  Country: None (occurrence: None)
  Receive Date: 20100715
  Receipt Date: 20100625
  Transmission Date: 20110219
  Serious: Yes (Hospitalization)
  Sender: FDA-Public Use
  Company Number: 230001E08POL

PATIENT
  Age: 26 Year
  Sex: Female
  Weight: 74 kg

DRUGS (2)
  1. REBIF [Suspect]
     Dosage: 44 MCG, SUBCUTANEOUS
     Route: 058
     Dates: start: 20071114
  2. REBIF [Suspect]

REACTIONS (1)
  - VARICELLA [None]
